FAERS Safety Report 23693730 (Version 2)
Quarter: 2024Q2

REPORT INFORMATION
  Report Type: Spontaneous
  Country: ES (occurrence: ES)
  Receive Date: 20240401
  Receipt Date: 20240426
  Transmission Date: 20240716
  Serious: Yes (Other)
  Sender: FDA-Public Use
  Company Number: ES-BAYER-2024A043452

PATIENT
  Age: 56 Year
  Sex: Female

DRUGS (1)
  1. MIRENA [Suspect]
     Active Substance: LEVONORGESTREL
     Indication: Contraception
     Dosage: 20?G/DAY
     Route: 015
     Dates: start: 201009

REACTIONS (4)
  - Invasive ductal breast carcinoma [None]
  - Cervix scarring [None]
  - Device use issue [None]
  - Complication of device removal [None]

NARRATIVE: CASE EVENT DATE: 20240101
